FAERS Safety Report 8109312-1 (Version None)
Quarter: 2012Q1

REPORT INFORMATION
  Report Type: 
  Country: None (occurrence: None)
  Receive Date: 20120202
  Receipt Date: 20120131
  Transmission Date: 20120608
  Serious: No
  Sender: FDA-Public Use
  Company Number: US-BAYER-2012-010719

PATIENT
  Sex: Male

DRUGS (1)
  1. GADAVIST [Suspect]
     Dosage: 9 ML, ONCE
     Dates: start: 20120101

REACTIONS (2)
  - NAUSEA [None]
  - VOMITING [None]
